FAERS Safety Report 16581973 (Version 1)
Quarter: 2019Q3

REPORT INFORMATION
  Report Type: Spontaneous
  Country: US (occurrence: US)
  Receive Date: 20190717
  Receipt Date: 20190717
  Transmission Date: 20191004
  Serious: No
  Sender: FDA-Public Use
  Company Number: US-SHIRE-US201922622

PATIENT
  Age: 77 Year
  Sex: Female

DRUGS (2)
  1. NATPARA (PARATHYROID HORMONE) [Suspect]
     Active Substance: PARATHYROID HORMONE
     Dosage: 25 MICROGRAM
     Route: 065
  2. NATPARA (PARATHYROID HORMONE) [Suspect]
     Active Substance: PARATHYROID HORMONE
     Indication: PRODUCT USED FOR UNKNOWN INDICATION
     Dosage: UNK, 1X/DAY:QD (DOSE: 50; UNIT: UNKNOWN)
     Route: 065
     Dates: start: 20190514, end: 20190514

REACTIONS (4)
  - Muscle spasms [Recovering/Resolving]
  - Family stress [Recovering/Resolving]
  - Paraesthesia [Recovering/Resolving]
  - Blood calcium increased [Recovering/Resolving]

NARRATIVE: CASE EVENT DATE: 20190514
